FAERS Safety Report 5679520-8 (Version None)
Quarter: 2008Q1

REPORT INFORMATION
  Report Type: 
  Country: None (occurrence: None)
  Receive Date: 20080325
  Receipt Date: 20080320
  Transmission Date: 20080703
  Serious: Yes (Life-Threatening)
  Sender: FDA-Public Use
  Company Number: GR-BOEHRINGER INGELHEIM GMBH, GERMANY-2008-DE-01683GB

PATIENT
  Sex: Male
  Weight: 76 kg

DRUGS (3)
  1. COMBIVENT [Suspect]
     Indication: CHRONIC OBSTRUCTIVE PULMONARY DISEASE
     Dates: start: 20080205, end: 20080315
  2. TILDIEM [Concomitant]
     Indication: HYPERTENSION
     Route: 048
     Dates: start: 20080123
  3. LASIX [Concomitant]
     Indication: HYPERTENSION
     Route: 048
     Dates: start: 20080123

REACTIONS (1)
  - ATRIAL FIBRILLATION [None]
